FAERS Safety Report 13157692 (Version 3)
Quarter: 2017Q3

REPORT INFORMATION
  Report Type: Report from Study
  Country: CN (occurrence: CN)
  Receive Date: 20170127
  Receipt Date: 20170710
  Transmission Date: 20171127
  Serious: Yes (Other)
  Sender: FDA-Public Use
  Company Number: CN-ROCHE-1863319

PATIENT
  Sex: Male
  Weight: 60 kg

DRUGS (2)
  1. AVASTIN [Suspect]
     Active Substance: BEVACIZUMAB
     Route: 041
  2. AVASTIN [Suspect]
     Active Substance: BEVACIZUMAB
     Indication: RECTAL CANCER METASTATIC
     Route: 041
     Dates: start: 20151129, end: 20170103

REACTIONS (5)
  - Proctalgia [Unknown]
  - Coagulation test abnormal [Unknown]
  - Diarrhoea [Unknown]
  - Cholelithiasis [Not Recovered/Not Resolved]
  - Stoma site discharge [Unknown]
